FAERS Safety Report 8096685-1 (Version None)
Quarter: 2012Q1

REPORT INFORMATION
  Report Type: 
  Country: None (occurrence: None)
  Receive Date: 20120129
  Receipt Date: 20111202
  Transmission Date: 20120608
  Serious: No
  Sender: FDA-Public Use
  Company Number: US-ABBOTT-11P-163-0880150-00

PATIENT
  Sex: Male
  Weight: 86.26 kg

DRUGS (5)
  1. FENTANYL [Concomitant]
     Indication: SPINAL OSTEOARTHRITIS
     Dosage: PATCH AS NEEDED
     Route: 061
  2. LISINOPRIL [Concomitant]
     Indication: HYPERTENSION
  3. MULTI-VITAMINS [Concomitant]
     Indication: VITAMIN SUPPLEMENTATION
  4. ASPIRIN [Concomitant]
     Indication: PRODUCT USED FOR UNKNOWN INDICATION
  5. HUMIRA [Suspect]
     Indication: CROHN'S DISEASE
     Dates: start: 20110801

REACTIONS (5)
  - DIARRHOEA [None]
  - FATIGUE [None]
  - DRUG INEFFECTIVE [None]
  - ABDOMINAL PAIN [None]
  - ABNORMAL FAECES [None]
